FAERS Safety Report 6845778-2 (Version None)
Quarter: 2010Q3

REPORT INFORMATION
  Report Type: 
  Country: None (occurrence: None)
  Receive Date: 20100715
  Receipt Date: 20070824
  Transmission Date: 20110219
  Serious: No
  Sender: FDA-Public Use
  Company Number: US-PFIZER INC-2007071581

PATIENT
  Sex: Female
  Weight: 54.4 kg

DRUGS (5)
  1. CHANTIX [Suspect]
     Indication: SMOKING CESSATION THERAPY
     Dates: start: 20070814
  2. LAMICTAL [Concomitant]
  3. EFFEXOR [Concomitant]
  4. RISPERIDONE [Concomitant]
  5. VERAPAMIL [Concomitant]

REACTIONS (1)
  - NIGHTMARE [None]
